FAERS Safety Report 21548063 (Version 2)
Quarter: 2023Q1

REPORT INFORMATION
  Report Type: Report from Study
  Country: JP (occurrence: JP)
  Receive Date: 20221103
  Receipt Date: 20230207
  Transmission Date: 20230418
  Serious: Yes (Death, Hospitalization, Other)
  Sender: FDA-Public Use
  Company Number: JP-KYOWAKIRIN-2021AKK016928

PATIENT

DRUGS (10)
  1. MOGAMULIZUMAB [Suspect]
     Active Substance: MOGAMULIZUMAB
     Indication: Adult T-cell lymphoma/leukaemia
     Dosage: 1 MG/KG
     Route: 041
     Dates: start: 20171027, end: 20171027
  2. DIPHENHYDRAMINE [Concomitant]
     Active Substance: DIPHENHYDRAMINE
     Indication: Prophylaxis
     Dosage: UNK
     Route: 065
     Dates: start: 20171027, end: 20171027
  3. ACETAMINOPHEN [Concomitant]
     Active Substance: ACETAMINOPHEN
     Indication: Prophylaxis
     Dosage: UNK
     Route: 065
     Dates: start: 20171027, end: 20171027
  4. FEBUXOSTAT [Concomitant]
     Active Substance: FEBUXOSTAT
     Indication: Prophylaxis
     Dosage: UNK
     Route: 048
  5. SULFAMETHOXAZOLE\TRIMETHOPRIM [Concomitant]
     Active Substance: SULFAMETHOXAZOLE\TRIMETHOPRIM
     Indication: Infection prophylaxis
     Dosage: UNK
     Route: 048
     Dates: start: 20171017
  6. ETIZOLAM [Concomitant]
     Active Substance: ETIZOLAM
     Indication: Product used for unknown indication
     Dosage: UNK
     Route: 048
     Dates: start: 20171029
  7. VIDARABINE [Concomitant]
     Active Substance: VIDARABINE
     Indication: Cheilitis
     Dosage: UNK
     Route: 061
     Dates: start: 20171030, end: 20171113
  8. MAGNESIUM OXIDE [Concomitant]
     Active Substance: MAGNESIUM OXIDE
     Indication: Product used for unknown indication
     Dosage: UNK
     Route: 048
  9. SENNOSIDES A AND B [Concomitant]
     Active Substance: SENNOSIDES A AND B
     Indication: Product used for unknown indication
     Dosage: UNK
     Route: 048
  10. REMERON [Concomitant]
     Active Substance: MIRTAZAPINE
     Indication: Product used for unknown indication
     Dosage: UNK
     Route: 048
     Dates: start: 20171107

REACTIONS (9)
  - Atrial fibrillation [Not Recovered/Not Resolved]
  - Tumour lysis syndrome [Not Recovered/Not Resolved]
  - Cytomegalovirus infection [Not Recovered/Not Resolved]
  - Adenoviral haemorrhagic cystitis [Recovered/Resolved]
  - Adult T-cell lymphoma/leukaemia recurrent [Fatal]
  - Febrile neutropenia [Recovered/Resolved]
  - Febrile neutropenia [Recovered/Resolved]
  - Rash [Recovered/Resolved]
  - Cheilitis [Recovered/Resolved]

NARRATIVE: CASE EVENT DATE: 20171030
